FAERS Safety Report 5761093-2 (Version None)
Quarter: 2008Q2

REPORT INFORMATION
  Report Type: 
  Country: None (occurrence: None)
  Receive Date: 20080606
  Receipt Date: 20080523
  Transmission Date: 20081010
  Serious: Yes (Other)
  Sender: FDA-Public Use
  Company Number: AU-GENENTECH-261878

PATIENT
  Sex: Female
  Weight: 85 kg

DRUGS (2)
  1. HERCEPTIN [Suspect]
     Indication: DRUG USE FOR UNKNOWN INDICATION
     Dosage: 160 MG, UNK
     Route: 042
     Dates: start: 20080119
  2. TAXOTERE [Concomitant]
     Indication: DRUG USE FOR UNKNOWN INDICATION
     Dosage: UNK, UNK
     Dates: start: 20080118, end: 20080320

REACTIONS (2)
  - ARTHRALGIA [None]
  - SYNOVITIS [None]
